FAERS Safety Report 8954619 (Version 1)
Quarter: 2012Q4

REPORT INFORMATION
  Report Type: 
  Country: US (occurrence: US)
  Receive Date: 20121207
  Receipt Date: 20121207
  Transmission Date: 20130627
  Serious: Yes (Hospitalization)
  Sender: FDA-Public Use
  Company Number: US-ABBOTT-12P-163-1017127-00

PATIENT
  Age: 32 Year

DRUGS (5)
  1. HUMIRA [Suspect]
     Indication: PSORIASIS
  2. HUMIRA [Suspect]
     Indication: PSORIATIC ARTHROPATHY
  3. REMICADE [Suspect]
     Indication: PSORIASIS
     Dosage: Lyophilized Powder
     Route: 042
  4. REMICADE [Suspect]
     Indication: PSORIATIC ARTHROPATHY
     Dosage: Lyophilized Powder
  5. ANALGESICS [Concomitant]

REACTIONS (2)
  - Dehydration [Recovered/Resolved]
  - Lupus-like syndrome [Recovered/Resolved]
